FAERS Safety Report 21185609 (Version 1)
Quarter: 2022Q3

REPORT INFORMATION
  Report Type: Spontaneous
  Country: US (occurrence: None)
  Receive Date: 20220808
  Receipt Date: 20220808
  Transmission Date: 20221027
  Serious: Yes (Disabling)
  Sender: FDA-Public Use
  Company Number: None

PATIENT
  Age: 49 Year
  Sex: Female
  Weight: 65.25 kg

DRUGS (3)
  1. FLUTICASONE [Suspect]
     Active Substance: FLUTICASONE
     Dosage: OTHER QUANTITY : 2 SPRAY(S);?FREQUENCY : TWICE A DAY;?OTHER ROUTE : NASALLY;?
     Route: 050
     Dates: start: 20210501, end: 20220627
  2. AZELASTINE [Concomitant]
  3. XYZAL [Concomitant]
     Active Substance: LEVOCETIRIZINE DIHYDROCHLORIDE

REACTIONS (8)
  - Ear discomfort [None]
  - Ear discomfort [None]
  - Hypoacusis [None]
  - Condition aggravated [None]
  - Tinnitus [None]
  - Ear discomfort [None]
  - Ear pruritus [None]
  - Deafness unilateral [None]

NARRATIVE: CASE EVENT DATE: 20210523
